FAERS Safety Report 23107987 (Version 1)
Quarter: 2023Q4

REPORT INFORMATION
  Report Type: Spontaneous
  Country: US (occurrence: US)
  Receive Date: 20231026
  Receipt Date: 20231026
  Transmission Date: 20240110
  Serious: No
  Sender: FDA-Public Use
  Company Number: US-Merck Healthcare KGaA-2023483628

PATIENT
  Age: 48 Year
  Sex: Female
  Weight: 84 kg

DRUGS (1)
  1. MAVENCLAD [Suspect]
     Active Substance: CLADRIBINE
     Indication: Multiple sclerosis
     Dosage: THERAPY
     Dates: start: 20230927

REACTIONS (1)
  - Headache [Unknown]
